FAERS Safety Report 4618500-8 (Version None)
Quarter: 2005Q1

REPORT INFORMATION
  Report Type: 
  Country: None (occurrence: None)
  Receive Date: 20050324
  Receipt Date: 20050309
  Transmission Date: 20050727
  Serious: Yes (Other)
  Sender: FDA-Public Use
  Company Number: FR-2004-026654

PATIENT
  Age: 36 Year
  Sex: Male
  Weight: 68 kg

DRUGS (5)
  1. CAMPATH [Suspect]
     Indication: ACUTE LEUKAEMIA
     Dosage: SEE IMAGE
     Route: 042
     Dates: start: 20040512, end: 20040512
  2. CAMPATH [Suspect]
     Indication: ACUTE LEUKAEMIA
     Dosage: SEE IMAGE
     Route: 042
     Dates: start: 20040514, end: 20040514
  3. CAMPATH [Suspect]
     Indication: ACUTE LEUKAEMIA
     Dosage: SEE IMAGE
     Route: 042
     Dates: start: 20040517, end: 20040517
  4. CAMPATH [Suspect]
     Indication: ACUTE LEUKAEMIA
     Dosage: SEE IMAGE
     Route: 042
     Dates: start: 20040519
  5. GLIVEC (IMATINIB MESILATE) [Concomitant]

REACTIONS (4)
  - ACCIDENTAL OVERDOSE [None]
  - CAUDA EQUINA SYNDROME [None]
  - MYELITIS [None]
  - POLYNEUROPATHY [None]
